FAERS Safety Report 17735740 (Version 1)
Quarter: 2020Q2

REPORT INFORMATION
  Report Type: Spontaneous
  Country: US (occurrence: US)
  Receive Date: 20200501
  Receipt Date: 20200501
  Transmission Date: 20200714
  Serious: No
  Sender: FDA-Public Use
  Company Number: US-BAUSCH-BL-2020-012344

PATIENT
  Sex: Female

DRUGS (1)
  1. XIFAXAN [Suspect]
     Active Substance: RIFAXIMIN
     Indication: PRODUCT USED FOR UNKNOWN INDICATION
     Dosage: TOOK A SMALL PIECE OF THE MEDICATION
     Route: 065
     Dates: start: 202004, end: 202004

REACTIONS (6)
  - Malaise [Unknown]
  - Wrong technique in product usage process [Unknown]
  - Product prescribing error [Unknown]
  - Heart rate increased [Unknown]
  - Throat tightness [Unknown]
  - Product storage error [Unknown]

NARRATIVE: CASE EVENT DATE: 202004
